FAERS Safety Report 9743151 (Version 1)
Quarter: 2013Q4

REPORT INFORMATION
  Report Type: Spontaneous
  Country: US (occurrence: US)
  Receive Date: 20131210
  Receipt Date: 20131210
  Transmission Date: 20140711
  Serious: No
  Sender: FDA-Public Use
  Company Number: US-GILEAD-2009-0024376

PATIENT
  Age: 75 Year
  Sex: Male
  Weight: 89.36 kg

DRUGS (17)
  1. LETAIRIS [Suspect]
     Indication: PULMONARY ARTERIAL HYPERTENSION
     Route: 048
     Dates: start: 20090701
  2. POTASSIUM CHLORIDE [Concomitant]
  3. OXYGEN [Concomitant]
  4. PROZAC [Concomitant]
  5. FUROSEMIDE [Concomitant]
  6. ISOSORBIDE [Concomitant]
  7. METOPROLOL [Concomitant]
  8. COUMADIN [Concomitant]
  9. TEKTURNA [Concomitant]
  10. LANTUS [Concomitant]
  11. LISINOPRIL [Concomitant]
  12. GLYBURIDE [Concomitant]
  13. ASPIRIN [Concomitant]
  14. CRESTOR [Concomitant]
  15. CATAPRES-TTS [Concomitant]
  16. DIGOXIN [Concomitant]
  17. METFORMIN HCL [Concomitant]

REACTIONS (1)
  - Epistaxis [Unknown]
